FAERS Safety Report 7633206-9 (Version None)
Quarter: 2011Q3

REPORT INFORMATION
  Report Type: 
  Country: None (occurrence: None)
  Receive Date: 20110725
  Receipt Date: 20110720
  Transmission Date: 20111222
  Serious: Yes (Life-Threatening, Hospitalization, Other)
  Sender: FDA-Public Use
  Company Number: BR-ROCHE-782035

PATIENT
  Sex: Male
  Weight: 72 kg

DRUGS (3)
  1. INTERFERON ALFA-2A [Suspect]
     Indication: HEPATITIS C
     Dosage: DOSE:180 MCG.
     Route: 065
     Dates: start: 20090101, end: 20090101
  2. RIBAVIRIN [Concomitant]
     Indication: HEPATITIS C
     Dosage: FREQUENCY:4 DAILY
     Route: 065
     Dates: start: 20090101
  3. AMYTRIL [Concomitant]

REACTIONS (6)
  - PANCREATIC DISORDER [None]
  - DIABETES MELLITUS [None]
  - ORGAN FAILURE [None]
  - INSOMNIA [None]
  - NERVOUSNESS [None]
  - AMNESIA [None]
